FAERS Safety Report 16162275 (Version 1)
Quarter: 2019Q2

REPORT INFORMATION
  Report Type: Spontaneous
  Country: SE (occurrence: SE)
  Receive Date: 20190405
  Receipt Date: 20190405
  Transmission Date: 20190711
  Serious: Yes (Other)
  Sender: FDA-Public Use
  Company Number: SE-MICRO LABS LIMITED-ML2019-00847

PATIENT
  Age: 89 Year
  Sex: Female

DRUGS (10)
  1. FLUINDIONE [Concomitant]
     Active Substance: FLUINDIONE
  2. MOLSIDOMINE [Concomitant]
     Active Substance: MOLSIDOMINE
  3. ISOSORBIDE DINITRATE. [Concomitant]
     Active Substance: ISOSORBIDE DINITRATE
  4. AMBROXOL [Concomitant]
     Active Substance: AMBROXOL
  5. FRUSEMIDE [Concomitant]
     Active Substance: FUROSEMIDE
  6. METOCLOPRAMIDE. [Concomitant]
     Active Substance: METOCLOPRAMIDE
  7. LEVOFLOXACIN. [Suspect]
     Active Substance: LEVOFLOXACIN
     Route: 048
  8. AMIODARONE [Concomitant]
     Active Substance: AMIODARONE
  9. DIGOXIN. [Concomitant]
     Active Substance: DIGOXIN
  10. LANSOPRAZOLE. [Concomitant]
     Active Substance: LANSOPRAZOLE

REACTIONS (2)
  - Myoclonus [Recovered/Resolved]
  - Encephalopathy [Recovered/Resolved]
